FAERS Safety Report 20576088 (Version 5)
Quarter: 2022Q3

REPORT INFORMATION
  Report Type: Report from Study
  Country: US (occurrence: US)
  Receive Date: 20220310
  Receipt Date: 20220901
  Transmission Date: 20221027
  Serious: Yes (Hospitalization, Other)
  Sender: FDA-Public Use
  Company Number: US-TAKEDA-2022TUS015351

PATIENT
  Sex: Female

DRUGS (4)
  1. MARIBAVIR [Suspect]
     Active Substance: MARIBAVIR
     Indication: Cytomegalovirus infection
     Dosage: 400 MILLIGRAM, BID
     Route: 048
     Dates: start: 20220210
  2. MARIBAVIR [Suspect]
     Active Substance: MARIBAVIR
     Indication: Post procedural infection
  3. TACROLIMUS [Suspect]
     Active Substance: TACROLIMUS
     Indication: Pain
     Dosage: UNK
     Route: 065
  4. CYCLOSPORINE [Suspect]
     Active Substance: CYCLOSPORINE
     Indication: Pain
     Dosage: UNK
     Route: 065

REACTIONS (11)
  - Platelet count decreased [Recovering/Resolving]
  - Neuropathy peripheral [Unknown]
  - Peripheral swelling [Unknown]
  - Bowel movement irregularity [Unknown]
  - Renal disorder [Unknown]
  - Pain [Unknown]
  - Adverse drug reaction [Recovering/Resolving]
  - Mobility decreased [Unknown]
  - Arthritis [Unknown]
  - Hypoaesthesia [Unknown]
  - Nausea [Unknown]
